FAERS Safety Report 6138292-3 (Version None)
Quarter: 2009Q1

REPORT INFORMATION
  Report Type: 
  Country: None (occurrence: None)
  Receive Date: 20090331
  Receipt Date: 20090325
  Transmission Date: 20090719
  Serious: Yes (Other)
  Sender: FDA-Public Use
  Company Number: PHEH2009US02633

PATIENT
  Sex: Female
  Weight: 53.3 kg

DRUGS (6)
  1. RECLAST [Suspect]
     Indication: OSTEOPOROSIS
     Dosage: 5 MG, ONCE/SINGLE
     Dates: start: 20090312, end: 20090312
  2. IBUPROFEN [Concomitant]
     Dosage: UNK, PRN
     Route: 048
  3. ASPIRIN [Concomitant]
     Dosage: 81 MG, QD
     Route: 048
  4. MULTI-VITAMINS [Concomitant]
     Dosage: UNK, DAILY
     Route: 048
  5. CALCIUM WITH VITAMIN D [Concomitant]
     Dosage: 400 MG /200 MG, BID
     Route: 048
  6. ZETIA [Concomitant]
     Dosage: 10 MG, QD
     Route: 048

REACTIONS (3)
  - BLOOD PRESSURE DECREASED [None]
  - DIZZINESS [None]
  - PALLOR [None]
